FAERS Safety Report 7492797-1 (Version None)
Quarter: 2011Q2

REPORT INFORMATION
  Report Type: 
  Country: None (occurrence: None)
  Receive Date: 20110519
  Receipt Date: 20110513
  Transmission Date: 20111010
  Serious: No
  Sender: FDA-Public Use
  Company Number: US-BAYER-2011-041546

PATIENT
  Age: 74 Year
  Sex: Female

DRUGS (2)
  1. LIOTHYRONINE SODIUM [Concomitant]
  2. AVELOX [Suspect]
     Indication: DIVERTICULITIS
     Dosage: 400 MG, QD
     Route: 048
     Dates: start: 20110508, end: 20110512

REACTIONS (4)
  - FEELING ABNORMAL [None]
  - DIZZINESS [None]
  - PAIN [None]
  - MALAISE [None]
